FAERS Safety Report 6058575-5 (Version None)
Quarter: 2009Q1

REPORT INFORMATION
  Report Type: 
  Country: None (occurrence: None)
  Receive Date: 20090130
  Receipt Date: 20090123
  Transmission Date: 20090719
  Serious: Yes (Hospitalization)
  Sender: FDA-Public Use
  Company Number: US-JNJFOC-20090106171

PATIENT
  Sex: Male
  Weight: 102.06 kg

DRUGS (5)
  1. DURAGESIC-100 [Suspect]
     Indication: BACK PAIN
     Route: 062
  2. FENTANYL TRANSDERMAL SYSTEM [Suspect]
     Indication: BACK PAIN
     Route: 062
  3. TALWIN [Suspect]
     Indication: PAIN
     Route: 048
  4. ALLOPURINOL [Concomitant]
     Indication: NEPHROLITHIASIS
     Route: 048
  5. PERCOCET [Concomitant]
     Indication: PAIN
     Route: 048

REACTIONS (11)
  - APPLICATION SITE EROSION [None]
  - APPLICATION SITE REACTION [None]
  - BLOOD PRESSURE FLUCTUATION [None]
  - CHOLELITHIASIS [None]
  - HALLUCINATION [None]
  - HYPERSOMNIA [None]
  - HYPERTENSION [None]
  - INCORRECT DRUG ADMINISTRATION DURATION [None]
  - MALAISE [None]
  - RESPIRATORY DISORDER [None]
  - RESPIRATORY RATE DECREASED [None]
